FAERS Safety Report 20718191 (Version 3)
Quarter: 2022Q3

REPORT INFORMATION
  Report Type: Report from Study
  Country: US (occurrence: US)
  Receive Date: 20220418
  Receipt Date: 20220808
  Transmission Date: 20221027
  Serious: No
  Sender: FDA-Public Use
  Company Number: US-NOVARTISTESTPH-NVSC2022US086721

PATIENT
  Sex: Female

DRUGS (1)
  1. COSENTYX [Suspect]
     Active Substance: SECUKINUMAB
     Indication: Psoriatic arthropathy
     Dosage: 150 MG
     Route: 058

REACTIONS (6)
  - Pain [Unknown]
  - Arthralgia [Unknown]
  - Groin pain [Unknown]
  - Anxiety [Unknown]
  - Product dose omission issue [Unknown]
  - Drug ineffective [Unknown]
